FAERS Safety Report 9261607 (Version 4)
Quarter: 2013Q3

REPORT INFORMATION
  Report Type: Spontaneous
  Country: US (occurrence: US)
  Receive Date: 20130429
  Receipt Date: 20130909
  Transmission Date: 20140515
  Serious: Yes (Other)
  Sender: FDA-Public Use
  Company Number: US-009507513-1304USA014861

PATIENT
  Sex: Male
  Weight: 95.69 kg

DRUGS (1)
  1. PROSCAR [Suspect]
     Indication: BENIGN PROSTATIC HYPERPLASIA
     Dosage: 5 MG, UNK
     Route: 048
     Dates: start: 2002

REACTIONS (55)
  - Squamous cell carcinoma [Unknown]
  - Acute myocardial infarction [Unknown]
  - Benign breast lump removal [Unknown]
  - Breast mass [Unknown]
  - Coronary arterial stent insertion [Unknown]
  - Hernia [Unknown]
  - Diverticulum [Unknown]
  - Crohn^s disease [Unknown]
  - Haemorrhoids [Unknown]
  - Rectal haemorrhage [Unknown]
  - Prostatitis [Unknown]
  - Urethral stenosis [Unknown]
  - Dysphonia [Unknown]
  - Dyspnoea [Unknown]
  - Arthralgia [Unknown]
  - Myalgia [Unknown]
  - Muscle spasms [Unknown]
  - Radiotherapy to prostate [Unknown]
  - Cancer surgery [Unknown]
  - Skin injury [Unknown]
  - Actinic keratosis [Unknown]
  - Skin disorder [Unknown]
  - Body tinea [Unknown]
  - Skin disorder [Unknown]
  - Tinea infection [Unknown]
  - Skin lesion [Unknown]
  - Haemorrhoid operation [Unknown]
  - Herpes zoster [Unknown]
  - Aortic arteriosclerosis [Unknown]
  - Haematuria [Unknown]
  - Diverticulum [Unknown]
  - Calcinosis [Unknown]
  - Arteriosclerosis [Unknown]
  - Spinal osteoarthritis [Unknown]
  - Exostosis [Unknown]
  - Spinal osteoarthritis [Unknown]
  - Coronary artery disease [Unknown]
  - Pollakiuria [Unknown]
  - Nocturia [Unknown]
  - Flank pain [Unknown]
  - Prostatic specific antigen increased [Unknown]
  - C-reactive protein increased [Unknown]
  - Blood triglycerides increased [Unknown]
  - Chest pain [Unknown]
  - Exercise test abnormal [Unknown]
  - Coronary artery occlusion [Unknown]
  - Coronary arterial stent insertion [Unknown]
  - Hyperlipidaemia [Unknown]
  - Metabolic syndrome [Unknown]
  - Drug intolerance [Unknown]
  - Muscle spasms [Unknown]
  - Drug ineffective [Unknown]
  - Gynaecomastia [Recovering/Resolving]
  - Prostate cancer [Unknown]
  - Skin cancer [Unknown]
